FAERS Safety Report 8461964-2 (Version None)
Quarter: 2012Q2

REPORT INFORMATION
  Report Type: 
  Country: None (occurrence: None)
  Receive Date: 20120323
  Receipt Date: 20111122
  Transmission Date: 20120825
  Serious: Yes (Hospitalization)
  Sender: FDA-Public Use
  Company Number: 163-21880-11100451

PATIENT
  Age: 61 Year
  Sex: Female

DRUGS (7)
  1. PAROXETINE HCL [Concomitant]
  2. CARDURA [Concomitant]
  3. LENALIDOMIDE [Suspect]
     Indication: PRODUCT USED FOR UNKNOWN INDICATION
     Dosage: 25 MG, DAILY, PO
     Route: 048
     Dates: start: 20110926, end: 20110929
  4. TRAZODONE HCL [Concomitant]
  5. DIALYVITE (DIALYVITE) [Concomitant]
  6. METOPROLOL TARTRATE [Concomitant]
  7. LANTUS [Concomitant]

REACTIONS (3)
  - RASH [None]
  - DYSPNOEA [None]
  - ANGIOEDEMA [None]
